FAERS Safety Report 12639356 (Version 1)
Quarter: 2016Q3

REPORT INFORMATION
  Report Type: Spontaneous
  Country: US (occurrence: None)
  Receive Date: 20160809
  Receipt Date: 20160809
  Transmission Date: 20161109
  Serious: No
  Sender: FDA-Public Use
  Company Number: None

PATIENT
  Age: 52 Year
  Sex: Female
  Weight: 104.33 kg

DRUGS (6)
  1. ZOLOFT [Concomitant]
     Active Substance: SERTRALINE HYDROCHLORIDE
  2. NATURE-THROID [Concomitant]
     Active Substance: THYROID, PORCINE
  3. VITAMINS [Concomitant]
     Active Substance: VITAMINS
  4. CICLOPIROX OLAMINE. [Suspect]
     Active Substance: CICLOPIROX OLAMINE
     Indication: FUNGAL INFECTION
     Dosage: 2 SMALL AMOUNTS IN THE MORNING APPLIED TO A SURFACE, USUALLY THE SKIN
     Dates: start: 20160808
  5. RISPERDAL [Concomitant]
     Active Substance: RISPERIDONE
  6. KLONOPIN [Concomitant]
     Active Substance: CLONAZEPAM

REACTIONS (3)
  - Suicidal ideation [None]
  - Unevaluable event [None]
  - Thinking abnormal [None]

NARRATIVE: CASE EVENT DATE: 20160808
